FAERS Safety Report 8286354-7 (Version None)
Quarter: 2012Q1

REPORT INFORMATION
  Report Type: 
  Country: None (occurrence: None)
  Receive Date: 20120327
  Receipt Date: 20120322
  Transmission Date: 20120608
  Serious: Yes (Hospitalization)
  Sender: FDA-Public Use
  Company Number: 2012031399

PATIENT
  Age: 51 Year
  Sex: Male

DRUGS (7)
  1. FOSCAVIR [Concomitant]
  2. VIVAGLOBIN [Suspect]
     Indication: CHRONIC LYMPHOCYTIC LEUKAEMIA
     Dosage: 6.4 G 1X/WEEK, 160MG/ML EVERY  7 DAYS INTRAVENOUS (NOT OTHERWISE SPECIFIED)
     Route: 042
     Dates: start: 20111025
  3. NOXAFIL [Suspect]
     Dates: start: 20110715, end: 20110926
  4. ACT HIB (HAEMOPHILUS B CONJUGATE VACCINE) [Suspect]
     Indication: IMMUNISATION
     Dates: start: 20110926, end: 20110926
  5. ACT HIB (HAEMOPHILUS B CONJUGATE VACCINE) [Suspect]
     Indication: IMMUNISATION
     Dates: start: 20111108, end: 20111108
  6. PREDNISONE TAB [Concomitant]
  7. GANCICLOVIR [Concomitant]

REACTIONS (12)
  - POLYDIPSIA [None]
  - HAEMOGLOBIN DECREASED [None]
  - INCORRECT ROUTE OF DRUG ADMINISTRATION [None]
  - POLYURIA [None]
  - WHITE BLOOD CELL COUNT INCREASED [None]
  - THROMBOCYTOPENIA [None]
  - BONE MARROW DISORDER [None]
  - OFF LABEL USE [None]
  - LEUKOPENIA [None]
  - GRAFT VERSUS HOST DISEASE [None]
  - CYTOMEGALOVIRUS TEST POSITIVE [None]
  - DIABETES MELLITUS [None]
